FAERS Safety Report 12306819 (Version 3)
Quarter: 2016Q2

REPORT INFORMATION
  Report Type: Spontaneous
  Country: RU (occurrence: RU)
  Receive Date: 20160426
  Receipt Date: 20160520
  Transmission Date: 20160815
  Serious: Yes (Other)
  Sender: FDA-Public Use
  Company Number: RU-JNJFOC-20160422493

PATIENT
  Age: 70 Year
  Sex: Female

DRUGS (3)
  1. SIMEPREVIR [Suspect]
     Active Substance: SIMEPREVIR
     Indication: HEPATITIS C
     Dosage: 12 WEEKS
     Route: 065
     Dates: start: 2015
  2. PEGYLATED INTERFERON ALFA-2A [Suspect]
     Active Substance: PEGINTERFERON ALFA-2A
     Indication: HEPATITIS C
     Dosage: 24 WEEKS
     Route: 058
     Dates: start: 2015
  3. RIBAVIRIN. [Suspect]
     Active Substance: RIBAVIRIN
     Indication: HEPATITIS C
     Dosage: 24 WEEKS
     Route: 065
     Dates: start: 2015

REACTIONS (13)
  - Mucosal dryness [Unknown]
  - Myalgia [Unknown]
  - Arthralgia [Unknown]
  - Thrombocytopenia [Unknown]
  - Hyperaesthesia [Unknown]
  - Anaemia [Unknown]
  - Hepatitis C [Unknown]
  - Leukopenia [Unknown]
  - Asthenia [Unknown]
  - Drug resistance [Unknown]
  - Fatigue [Unknown]
  - Aspartate aminotransferase increased [Unknown]
  - Alanine aminotransferase increased [Unknown]
